FAERS Safety Report 12779774 (Version 1)
Quarter: 2016Q3

REPORT INFORMATION
  Report Type: Spontaneous
  Country: US (occurrence: US)
  Receive Date: 20160924
  Receipt Date: 20160924
  Transmission Date: 20161109
  Serious: Yes (Life-Threatening)
  Sender: FDA-Public Use
  Company Number: None

PATIENT
  Age: 80 Year
  Sex: Male
  Weight: 104.8 kg

DRUGS (1)
  1. ALTEPLASE [Suspect]
     Active Substance: ALTEPLASE
     Indication: ISCHAEMIC STROKE
     Dosage: OTHER STRENGTH:;OTHER DOSE:;OTHER FREQUENCY:ONE TIME DOSE;OTHER ROUTE:
     Route: 042
     Dates: start: 20160923, end: 20160923

REACTIONS (2)
  - Anaphylactic reaction [None]
  - Obstructive airways disorder [None]

NARRATIVE: CASE EVENT DATE: 20160923
